FAERS Safety Report 14213592 (Version 1)
Quarter: 2017Q4

REPORT INFORMATION
  Report Type: Report from Study
  Country: EC (occurrence: EC)
  Receive Date: 20171122
  Receipt Date: 20171122
  Transmission Date: 20180321
  Serious: Yes (Death, Hospitalization)
  Sender: FDA-Public Use
  Company Number: EC-ROCHE-1845946

PATIENT
  Age: 22 Year
  Sex: Female

DRUGS (1)
  1. MABTHERA [Suspect]
     Active Substance: RITUXIMAB
     Indication: LEUKAEMIA
     Route: 042
     Dates: start: 201610

REACTIONS (2)
  - Pharyngeal mass [Recovering/Resolving]
  - Cardiac arrest [Fatal]

NARRATIVE: CASE EVENT DATE: 20161014
